FAERS Safety Report 16276897 (Version 1)
Quarter: 2019Q2

REPORT INFORMATION
  Report Type: Spontaneous
  Country: US (occurrence: US)
  Receive Date: 20190506
  Receipt Date: 20190506
  Transmission Date: 20190711
  Serious: No
  Sender: FDA-Public Use
  Company Number: US-PFIZER INC-2019186848

PATIENT
  Age: 58 Year
  Sex: Female

DRUGS (1)
  1. IBRANCE [Suspect]
     Active Substance: PALBOCICLIB
     Dosage: 100 MG, CYCLIC (1 CAP DAILY, ONCE A DAY, 21D THEN 7D OFF)
     Route: 048

REACTIONS (2)
  - Musculoskeletal pain [Unknown]
  - Breast pain [Not Recovered/Not Resolved]
